FAERS Safety Report 14967801 (Version 1)
Quarter: 2018Q2

REPORT INFORMATION
  Report Type: Spontaneous
  Country: US (occurrence: US)
  Receive Date: 20180604
  Receipt Date: 20180604
  Transmission Date: 20180711
  Serious: No
  Sender: FDA-Public Use
  Company Number: US-PFIZER INC-2018222597

PATIENT
  Sex: Male

DRUGS (2)
  1. CENTRUM SILVER MEN^S 50+ [Suspect]
     Active Substance: MINERALS\VITAMINS
     Dosage: UNK
  2. ADVIL [Suspect]
     Active Substance: IBUPROFEN
     Dosage: UNK

REACTIONS (1)
  - Gastric disorder [Recovered/Resolved]
